FAERS Safety Report 5177812-2 (Version None)
Quarter: 2006Q4

REPORT INFORMATION
  Report Type: 
  Country: None (occurrence: None)
  Receive Date: 20061208
  Receipt Date: 20061205
  Transmission Date: 20070319
  Serious: Yes (Disabling)
  Sender: FDA-Public Use
  Company Number: THQ2006A01131

PATIENT
  Age: 57 Year
  Sex: Female

DRUGS (6)
  1. LANSOPRAZOLE [Suspect]
     Indication: REFLUX OESOPHAGITIS
     Dosage: 30 MG (30 MG,1 IN 1 D)
     Route: 048
     Dates: start: 20060627, end: 20060811
  2. EPILIM (VALPROATE SODIUM) [Concomitant]
  3. LEVOTHYROXINE SODIUM [Concomitant]
  4. PREMPAK-C [Concomitant]
  5. VENTOLIN [Concomitant]
  6. SYMBICORT [Concomitant]

REACTIONS (1)
  - VISION BLURRED [None]
